FAERS Safety Report 7397878-9 (Version None)
Quarter: 2011Q2

REPORT INFORMATION
  Report Type: 
  Country: None (occurrence: None)
  Receive Date: 20110406
  Receipt Date: 20110328
  Transmission Date: 20111010
  Serious: Yes (Hospitalization, Other)
  Sender: FDA-Public Use
  Company Number: US-ASTRAZENECA-2010SE54414

PATIENT
  Age: 63 Year
  Sex: Female
  Weight: 94.8 kg

DRUGS (16)
  1. NEXIUM [Suspect]
     Route: 048
     Dates: start: 20100901
  2. BUSPAR [Concomitant]
     Route: 048
  3. PRAVASTATIN [Concomitant]
     Indication: HYPERCHOLESTEROLAEMIA
     Route: 048
  4. OXYGEN [Concomitant]
     Indication: CHRONIC OBSTRUCTIVE PULMONARY DISEASE
     Route: 048
  5. CRESTOR [Suspect]
     Route: 048
     Dates: start: 20100501
  6. LOPRESSOR [Concomitant]
     Route: 048
  7. IPRATROPIUM BROMIDE [Concomitant]
     Indication: CHRONIC OBSTRUCTIVE PULMONARY DISEASE
     Route: 050
  8. NEXIUM [Suspect]
     Indication: ABDOMINAL PAIN UPPER
     Route: 048
  9. SEROQUEL XR [Suspect]
     Route: 048
     Dates: start: 20090101
  10. POTASSIUM [Concomitant]
     Route: 048
  11. TOPROL-XL [Concomitant]
     Route: 048
  12. ALBUTEROL SULFATE [Concomitant]
     Indication: CHRONIC OBSTRUCTIVE PULMONARY DISEASE
     Route: 050
  13. PREMARIN [Concomitant]
     Indication: HORMONE REPLACEMENT THERAPY
     Route: 048
  14. EFFIENT [Concomitant]
     Route: 048
  15. SEROQUEL XR [Suspect]
     Indication: SCHIZOPHRENIA
     Dosage: 100 MG AT 08:00 AND 50 MG AT 20:00
     Route: 048
     Dates: start: 20070101, end: 20090101
  16. IMDUR [Concomitant]
     Route: 048

REACTIONS (16)
  - FALL [None]
  - WEIGHT INCREASED [None]
  - CATHETERISATION CARDIAC [None]
  - SCHIZOPHRENIA [None]
  - JOINT INJURY [None]
  - LIMB INJURY [None]
  - BACK PAIN [None]
  - CORONARY ARTERIAL STENT INSERTION [None]
  - MUSCLE SPASMS [None]
  - BLEPHARAL PIGMENTATION [None]
  - FEELING JITTERY [None]
  - TACHYCARDIA [None]
  - CHRONIC OBSTRUCTIVE PULMONARY DISEASE [None]
  - ARTHRALGIA [None]
  - LOWER RESPIRATORY TRACT INFECTION [None]
  - CHEST PAIN [None]
